FAERS Safety Report 12400675 (Version 2)
Quarter: 2016Q2

REPORT INFORMATION
  Report Type: Spontaneous
  Country: US (occurrence: US)
  Receive Date: 20160525
  Receipt Date: 20160525
  Transmission Date: 20160815
  Serious: No
  Sender: FDA-Public Use
  Company Number: US-SA-2015SA090949

PATIENT
  Age: 72 Year
  Sex: Female

DRUGS (3)
  1. NOVOLOG [Suspect]
     Active Substance: INSULIN ASPART
     Route: 065
     Dates: end: 201505
  2. SOLOSTAR [Concomitant]
     Active Substance: DEVICE
     Dates: start: 2013, end: 201506
  3. LANTUS SOLOSTAR [Suspect]
     Active Substance: INSULIN GLARGINE
     Indication: TYPE 2 DIABETES MELLITUS
     Dosage: DOSE:35 UNIT(S)
     Route: 065
     Dates: start: 2013, end: 201506

REACTIONS (7)
  - Blood glucose increased [Recovered/Resolved]
  - Tremor [Recovered/Resolved]
  - Dysstasia [Recovered/Resolved]
  - Peripheral swelling [Recovered/Resolved]
  - Swelling [Recovered/Resolved]
  - Asthenia [Recovered/Resolved]
  - Muscular weakness [Recovered/Resolved]
